FAERS Safety Report 9673120 (Version 3)
Quarter: 2013Q4

REPORT INFORMATION
  Report Type: Spontaneous
  Country: US (occurrence: US)
  Receive Date: 20131106
  Receipt Date: 20131202
  Transmission Date: 20140711
  Serious: No
  Sender: FDA-Public Use
  Company Number: US-AMGEN-USASP2013071665

PATIENT
  Age: 64 Year
  Sex: Female
  Weight: 58.96 kg

DRUGS (7)
  1. ENBREL [Suspect]
     Indication: RHEUMATOID ARTHRITIS
     Dosage: 50 MG, QWK
     Route: 058
     Dates: end: 201308
  2. DILTIAZEM [Concomitant]
     Dosage: 180MG/24, UNK
  3. FOSAMAX [Concomitant]
     Dosage: 10 MG, UNK
  4. NEXIUM                             /01479302/ [Concomitant]
     Dosage: 20 MG, UNK
  5. PREDNISONE [Concomitant]
     Dosage: 2.5 MG, UNK
  6. LIPITOR [Concomitant]
     Dosage: 80 MG, UNK
  7. ESTRADIOL [Concomitant]
     Dosage: 0.05 MG, UNK

REACTIONS (6)
  - Drug ineffective [Unknown]
  - Arthralgia [Unknown]
  - Arthritis [Unknown]
  - Pain in extremity [Unknown]
  - Cystitis [Unknown]
  - Rheumatoid arthritis [Unknown]
